FAERS Safety Report 24419757 (Version 2)
Quarter: 2024Q4

REPORT INFORMATION
  Report Type: Spontaneous
  Country: CA (occurrence: CA)
  Receive Date: 20241010
  Receipt Date: 20241013
  Transmission Date: 20250115
  Serious: Yes (Other)
  Sender: JOHNSON AND JOHNSON
  Company Number: CA-JNJFOC-20241016674

PATIENT
  Age: 19 Year
  Sex: Male

DRUGS (4)
  1. REMICADE [Suspect]
     Active Substance: INFLIXIMAB
     Indication: Product used for unknown indication
     Route: 041
  2. ENTYVIO [Suspect]
     Active Substance: VEDOLIZUMAB
     Indication: Crohn^s disease
     Route: 042
  3. ENTYVIO [Suspect]
     Active Substance: VEDOLIZUMAB
     Route: 042
  4. INFLECTRA [Concomitant]
     Active Substance: INFLIXIMAB-DYYB

REACTIONS (9)
  - Acne [Unknown]
  - Arthralgia [Unknown]
  - Autoimmune hepatitis [Unknown]
  - Drug specific antibody present [Unknown]
  - Epstein-Barr virus infection [Unknown]
  - Myalgia [Unknown]
  - Phlebitis [Unknown]
  - Therapy non-responder [Unknown]
  - Off label use [Unknown]
